FAERS Safety Report 11408583 (Version 1)
Quarter: 2015Q3

REPORT INFORMATION
  Report Type: Spontaneous
  Country: GB (occurrence: GB)
  Receive Date: 20150822
  Receipt Date: 20150822
  Transmission Date: 20151125
  Serious: Yes (Death, Hospitalization)
  Sender: FDA-Public Use
  Company Number: GB-ACCORD-033056

PATIENT
  Age: 56 Year
  Sex: Female

DRUGS (26)
  1. SALBUTAMOL [Concomitant]
     Active Substance: ALBUTEROL
     Route: 055
  2. CLOPIDOGREL [Concomitant]
     Active Substance: CLOPIDOGREL BISULFATE
     Dosage: IN THE MORNING.
  3. CREON [Concomitant]
     Active Substance: PANCRELIPASE AMYLASE\PANCRELIPASE LIPASE\PANCRELIPASE PROTEASE
  4. ATORVASTATIN [Concomitant]
     Active Substance: ATORVASTATIN
     Dosage: AT NIGHT.
  5. BETAHISTINE [Concomitant]
     Active Substance: BETAHISTINE
     Dosage: ALSO RECEIVED 16 MG TID
  6. METOCLOPRAMIDE. [Concomitant]
     Active Substance: METOCLOPRAMIDE
  7. BUMETANIDE. [Concomitant]
     Active Substance: BUMETANIDE
     Dosage: IN THE MORNING.
  8. MORPHINE [Concomitant]
     Active Substance: MORPHINE
  9. CODEINE [Concomitant]
     Active Substance: CODEINE
  10. GLYCERYL TRINITRATE [Concomitant]
     Active Substance: NITROGLYCERIN
     Dosage: AS NEEDED.
  11. PREGABALIN. [Concomitant]
     Active Substance: PREGABALIN
     Dosage: AT NIGHT.
  12. BAMBUTEROL/BAMBUTEROL HYDROCHLORIDE [Concomitant]
     Dosage: AT NIGHT.
  13. ACICLOVIR [Concomitant]
     Active Substance: ACYCLOVIR
  14. IRON [Concomitant]
     Active Substance: IRON
  15. AMITRIPTYLINE [Concomitant]
     Active Substance: AMITRIPTYLINE
     Dosage: AT NIGHT.
  16. CITALOPRAM [Concomitant]
     Active Substance: CITALOPRAM HYDROBROMIDE
     Dosage: IN THE MORNING.
  17. SPIRONOLACTONE. [Interacting]
     Active Substance: SPIRONOLACTONE
     Indication: PRODUCT USED FOR UNKNOWN INDICATION
     Dosage: IN THE MORNING.
  18. CETIRIZINE [Concomitant]
     Active Substance: CETIRIZINE HYDROCHLORIDE
     Dosage: AT NIGHT.
  19. METFORMIN [Concomitant]
     Active Substance: METFORMIN HYDROCHLORIDE
  20. PARACETAMOL [Concomitant]
     Active Substance: ACETAMINOPHEN
     Dosage: 1-2 TABLETS EVERY 4-6 HOURS AS REQUIRED.
  21. CYCLIZINE [Concomitant]
     Active Substance: CYCLIZINE
  22. LISINOPRIL. [Suspect]
     Active Substance: LISINOPRIL
     Indication: HYPERTENSION
     Dates: start: 20140308
  23. NOVOMIX [Concomitant]
     Active Substance: INSULIN ASPART
     Dosage: 30/70, 78 UNITS BEFORE BREAKFAST AND 58 UNITS BEFORE EVENING MEAL.
  24. BISOPROLOL [Concomitant]
     Active Substance: BISOPROLOL
  25. OMEPRAZOLE. [Concomitant]
     Active Substance: OMEPRAZOLE
     Dosage: IN THE MORNING.
  26. QUININE [Concomitant]
     Active Substance: QUININE
     Dosage: AT NIGHT.

REACTIONS (16)
  - Hyperkalaemia [Fatal]
  - Contraindicated drug administered [Not Recovered/Not Resolved]
  - Dyspnoea [Not Recovered/Not Resolved]
  - Fall [Unknown]
  - Fatigue [Not Recovered/Not Resolved]
  - Oxygen saturation decreased [Not Recovered/Not Resolved]
  - Cough [Not Recovered/Not Resolved]
  - Cardiac arrest [Fatal]
  - Pulseless electrical activity [Not Recovered/Not Resolved]
  - Wheezing [Not Recovered/Not Resolved]
  - Drug interaction [Not Recovered/Not Resolved]
  - Acute kidney injury [Fatal]
  - Peripheral swelling [Not Recovered/Not Resolved]
  - Arrhythmia [Not Recovered/Not Resolved]
  - Sputum discoloured [Not Recovered/Not Resolved]
  - Depressed level of consciousness [Not Recovered/Not Resolved]

NARRATIVE: CASE EVENT DATE: 20140322
